FAERS Safety Report 5478179-2 (Version None)
Quarter: 2007Q4

REPORT INFORMATION
  Report Type: 
  Country: None (occurrence: None)
  Receive Date: 20071005
  Receipt Date: 20070313
  Transmission Date: 20080405
  Serious: No
  Sender: FDA-Public Use
  Company Number: US-BRISTOL-MYERS SQUIBB COMPANY-13711494

PATIENT
  Age: 56 Year
  Sex: Female
  Weight: 77 kg

DRUGS (5)
  1. AVAPRO [Suspect]
     Indication: HYPERTENSION
     Dosage: STOPPED AVAPRO ABOUT 4 MTHS AGO RESTARTED 1 WK AGO @ 75 MG 1/2 TAB DAILY THEN STOPPED AGAIN
  2. INDERAL LA [Concomitant]
  3. CARDIZEM CD [Concomitant]
  4. SYNTHROID [Concomitant]
  5. ORTHO-EST [Concomitant]

REACTIONS (3)
  - DIZZINESS [None]
  - THROAT TIGHTNESS [None]
  - UPPER RESPIRATORY TRACT CONGESTION [None]
